FAERS Safety Report 9295419 (Version 1)
Quarter: 2013Q2

REPORT INFORMATION
  Report Type: Spontaneous
  Country: DE (occurrence: DE)
  Receive Date: 20130517
  Receipt Date: 20130517
  Transmission Date: 20140414
  Serious: Yes (Disabling)
  Sender: FDA-Public Use
  Company Number: DE-PFIZER INC-2013150314

PATIENT
  Age: 50 Year
  Sex: Male
  Weight: 80 kg

DRUGS (1)
  1. TREVILOR RETARD [Suspect]
     Indication: CYCLOTHYMIC DISORDER
     Dosage: 225 (UNITS UNKNOWN); UNK
     Route: 048
     Dates: start: 2007

REACTIONS (1)
  - Sensory disturbance [Not Recovered/Not Resolved]
